FAERS Safety Report 12170185 (Version 4)
Quarter: 2016Q2

REPORT INFORMATION
  Report Type: Report from Study
  Country: CA (occurrence: CA)
  Receive Date: 20160311
  Receipt Date: 20160512
  Transmission Date: 20160815
  Serious: Yes (Other)
  Sender: FDA-Public Use
  Company Number: CA-ROCHE-1453023

PATIENT
  Age: 60 Year
  Sex: Female

DRUGS (17)
  1. OMEGA 3 [Concomitant]
     Active Substance: OMEGA-3 FATTY ACIDS
  2. MAITAKE MUSHROOM [Concomitant]
     Active Substance: MAITAKE
  3. CLOBETASOL [Concomitant]
     Active Substance: CLOBETASOL
  4. METHYLPREDNISOLONE. [Concomitant]
     Active Substance: METHYLPREDNISOLONE
     Indication: PREMEDICATION
     Route: 042
     Dates: start: 20140226
  5. NEXIUM [Concomitant]
     Active Substance: ESOMEPRAZOLE MAGNESIUM
     Route: 065
  6. CLONIDINE. [Concomitant]
     Active Substance: CLONIDINE
  7. LYDERM (CANADA) [Concomitant]
     Dosage: GEL AND CREAM
     Route: 065
  8. IMURAN [Suspect]
     Active Substance: AZATHIOPRINE
     Indication: PRODUCT USED FOR UNKNOWN INDICATION
     Route: 065
  9. ACETAMINOPHEN. [Concomitant]
     Active Substance: ACETAMINOPHEN
     Indication: PREMEDICATION
     Route: 048
     Dates: start: 20140226
  10. DIPHENHYDRAMINE HCL [Concomitant]
     Active Substance: DIPHENHYDRAMINE HYDROCHLORIDE
     Indication: PREMEDICATION
     Route: 048
     Dates: start: 20140226
  11. SUPER EFA [Concomitant]
  12. COENZYME Q10 [Concomitant]
     Active Substance: UBIDECARENONE
  13. FUCIDIN [Concomitant]
     Active Substance: FUSIDIC ACID
  14. RITUXAN [Suspect]
     Active Substance: RITUXIMAB
     Indication: PEMPHIGUS
     Dosage: DATE OF LAST DOSE: 12/MAR/2014?RECENT RITUXIMAB INFUSION: 02/SEP/2014.
     Route: 042
     Dates: start: 20140226
  15. REFRESH PLUS [Concomitant]
     Active Substance: CARBOXYMETHYLCELLULOSE SODIUM
  16. PREDNISONE. [Suspect]
     Active Substance: PREDNISONE
     Indication: PRODUCT USED FOR UNKNOWN INDICATION
     Route: 065
  17. DHEA [Concomitant]
     Active Substance: PRASTERONE

REACTIONS (7)
  - Pemphigus [Not Recovered/Not Resolved]
  - Hypothyroidism [Unknown]
  - Musculoskeletal pain [Unknown]
  - Blood pressure increased [Unknown]
  - Carpal tunnel syndrome [Unknown]
  - Exposure to communicable disease [Unknown]
  - Drug ineffective [Unknown]

NARRATIVE: CASE EVENT DATE: 201502
